FAERS Safety Report 9417032 (Version 1)
Quarter: 2013Q3

REPORT INFORMATION
  Report Type: Spontaneous
  Country: DE (occurrence: DE)
  Receive Date: 20130724
  Receipt Date: 20130724
  Transmission Date: 20140515
  Serious: Yes (Other)
  Sender: FDA-Public Use
  Company Number: DE-JNJFOC-20130709993

PATIENT
  Sex: Male
  Weight: 79 kg

DRUGS (2)
  1. XARELTO [Suspect]
     Indication: THROMBOSIS
     Route: 048
     Dates: start: 20130318, end: 20130322
  2. KETOCONAZOLE [Concomitant]
     Route: 065

REACTIONS (3)
  - Hypertension [Unknown]
  - Restlessness [Recovered/Resolved with Sequelae]
  - Tachycardia [Recovered/Resolved]
